FAERS Safety Report 7540662-3 (Version None)
Quarter: 2011Q2

REPORT INFORMATION
  Report Type: 
  Country: None (occurrence: None)
  Receive Date: 20110610
  Receipt Date: 20110602
  Transmission Date: 20111010
  Serious: Yes (Other)
  Sender: FDA-Public Use
  Company Number: PHHY2011IN47739

PATIENT
  Age: 47 Year
  Sex: Male

DRUGS (4)
  1. SUCCINYLCHOLINE CHLORIDE [Suspect]
  2. METRONIDAZOLE [Suspect]
  3. HYPOGLYCEMIC AGENTS [Concomitant]
     Indication: DIABETES MELLITUS
     Route: 048
  4. ATORVASTATIN [Suspect]
     Indication: BLOOD TRIGLYCERIDES INCREASED
     Dosage: 10 MG, QD

REACTIONS (6)
  - MUSCULAR WEAKNESS [None]
  - MYOSITIS [None]
  - BLOOD CREATINE PHOSPHOKINASE INCREASED [None]
  - BLOOD UREA INCREASED [None]
  - MYALGIA [None]
  - BLOOD CREATININE INCREASED [None]
